FAERS Safety Report 7647446-6 (Version None)
Quarter: 2011Q3

REPORT INFORMATION
  Report Type: 
  Country: None (occurrence: None)
  Receive Date: 20110726
  Receipt Date: 20110715
  Transmission Date: 20111222
  Serious: Yes (Other)
  Sender: FDA-Public Use
  Company Number: US-2011-10491

PATIENT
  Age: 38 Year
  Sex: Male

DRUGS (12)
  1. METHROTREXATE (METHOTREXATE) [Concomitant]
  2. CYCLOSPORINE [Concomitant]
  3. GANCICLOVIR (GANCICLOVIR SODIUM) [Concomitant]
  4. G-CSF (G-CSF) [Concomitant]
  5. BASILIXIMAB (BASILIXIMAB) [Concomitant]
  6. BUSULFAN [Suspect]
     Indication: STEM CELL TRANSPLANT
     Dosage: 4 MG/KG, DAILY DOSE, INTRAVENOUS
     Route: 042
  7. CLOBULINES ANTILYMPHOCYTAIRES FRESENIUS (ANTILYMPHOCYTE IMMUNOGLOBULIN [Concomitant]
  8. IMMUNOGLOBULIN G HUMAN (IMMUNGLOBULIN G HUMAN) [Concomitant]
  9. THIOTEPA [Concomitant]
  10. ANTIBIOTICS AND CHEMOTHERAPEUTICS, COMBINATIONS [Concomitant]
  11. CYCLOPHOSPHAMIDE [Suspect]
     Indication: STEM CELL TRANSPLANT
     Dosage: 60 MG/KG, DAILY DOSE
  12. MYCOPHENOLATE MOFETIL [Concomitant]

REACTIONS (3)
  - ACUTE GRAFT VERSUS HOST DISEASE IN SKIN [None]
  - GUILLAIN-BARRE SYNDROME [None]
  - NEUTROPHIL COUNT ABNORMAL [None]
